FAERS Safety Report 5488508-1 (Version None)
Quarter: 2007Q4

REPORT INFORMATION
  Report Type: 
  Country: None (occurrence: None)
  Receive Date: 20071017
  Receipt Date: 20071012
  Transmission Date: 20080405
  Serious: Yes (Other)
  Sender: FDA-Public Use
  Company Number: CA-ASTRAZENECA-2007UW23870

PATIENT
  Age: 34 Year
  Sex: Female

DRUGS (3)
  1. SEROQUEL [Suspect]
     Route: 048
  2. SERZONE [Suspect]
  3. RISPERDAL [Suspect]

REACTIONS (18)
  - ALOPECIA [None]
  - BLOOD PROLACTIN INCREASED [None]
  - DEPRESSION [None]
  - DISORIENTATION [None]
  - FIBROMYALGIA [None]
  - GASTROINTESTINAL MOTILITY DISORDER [None]
  - HAEMORRHAGIC DISORDER [None]
  - HEADACHE [None]
  - MEMORY IMPAIRMENT [None]
  - MIGRAINE [None]
  - MUSCLE DISORDER [None]
  - MUSCLE TIGHTNESS [None]
  - MYALGIA [None]
  - SCAR [None]
  - SKIN EXFOLIATION [None]
  - SUICIDAL IDEATION [None]
  - THINKING ABNORMAL [None]
  - WEIGHT INCREASED [None]
